FAERS Safety Report 5919474-X (Version None)
Quarter: 2008Q4

REPORT INFORMATION
  Report Type: 
  Country: None (occurrence: None)
  Receive Date: 20081015
  Receipt Date: 20081010
  Transmission Date: 20090506
  Serious: Yes (Death)
  Sender: FDA-Public Use
  Company Number: CA-WYE-H06323208

PATIENT
  Age: 60 Year
  Sex: Male
  Weight: 112 kg

DRUGS (3)
  1. GEMTUZUMAB OZOGAMICIN [Suspect]
     Indication: ACUTE MYELOID LEUKAEMIA
     Dosage: 13.5 MG TOTAL DOSE ADMINISTERED
     Route: 042
     Dates: start: 20070712, end: 20070715
  2. DAUNORUBICIN HCL [Suspect]
     Indication: ACUTE MYELOID LEUKAEMIA
     Dosage: 101.7 MG TOTAL DOSE ADMINISTERED
     Route: 042
     Dates: start: 20070712, end: 20070714
  3. CYTARABINE [Suspect]
     Indication: ACUTE MYELOID LEUKAEMIA
     Dosage: 226 MG TOTAL DOSE ADMINISTERED
     Route: 042
     Dates: start: 20070712, end: 20070718

REACTIONS (1)
  - HYPOXIA [None]
